FAERS Safety Report 10444903 (Version 2)
Quarter: 2014Q4

REPORT INFORMATION
  Report Type: Spontaneous
  Country: IT (occurrence: IT)
  Receive Date: 20140910
  Receipt Date: 20141203
  Transmission Date: 20150528
  Serious: Yes (Life-Threatening, Hospitalization)
  Sender: FDA-Public Use
  Company Number: IT-SA-2014SA120545

PATIENT
  Age: 30 Year
  Sex: Male

DRUGS (2)
  1. LANTUS [Suspect]
     Active Substance: INSULIN GLARGINE
     Indication: MEDICATION ERROR
     Dosage: REFILL (GLASS) IN PRE-FILLED PEN (SOLOSTAR) 3 ML 1 PRE-FILLED PEN DOSE:30 UNIT(S)
     Route: 058
     Dates: start: 20070501, end: 20140826
  2. APIDRA [Suspect]
     Active Substance: INSULIN GLULISINE
     Indication: MEDICATION ERROR
     Dosage: PREFILLED PEN (GLASS) (SOLOSTAR) 3 ML 1 PREFILLED PEN DOSE:70 UNIT(S)
     Route: 058
     Dates: start: 20070501, end: 20140826

REACTIONS (4)
  - Hypoglycaemia [Recovering/Resolving]
  - Blood glucose abnormal [Unknown]
  - Medication error [Unknown]
  - Lipase increased [Unknown]

NARRATIVE: CASE EVENT DATE: 20140826
